FAERS Safety Report 4587480-6 (Version None)
Quarter: 2005Q1

REPORT INFORMATION
  Report Type: 
  Country: None (occurrence: None)
  Receive Date: 20050215
  Receipt Date: 20050207
  Transmission Date: 20050727
  Serious: No
  Sender: FDA-Public Use
  Company Number: 2005UW02080

PATIENT
  Age: 65 Year

DRUGS (2)
  1. IRESSA [Suspect]
     Indication: LUNG NEOPLASM MALIGNANT
     Dosage: 250 MG PO
     Route: 048
  2. COUMADIN [Concomitant]

REACTIONS (1)
  - RHABDOMYOLYSIS [None]
